FAERS Safety Report 17899740 (Version 1)
Quarter: 2020Q2

REPORT INFORMATION
  Report Type: Spontaneous
  Country: US (occurrence: US)
  Receive Date: 20200615
  Receipt Date: 20200615
  Transmission Date: 20200714
  Serious: Yes (Hospitalization)
  Sender: FDA-Public Use
  Company Number: None

PATIENT
  Age: 69 Year
  Sex: Female

DRUGS (11)
  1. CELECOXIB. [Concomitant]
     Active Substance: CELECOXIB
  2. CARVEDILOL. [Concomitant]
     Active Substance: CARVEDILOL
  3. SUCRALFATE. [Concomitant]
     Active Substance: SUCRALFATE
  4. CEPHALEXIN. [Concomitant]
     Active Substance: CEPHALEXIN
  5. LOSARTAN. [Concomitant]
     Active Substance: LOSARTAN
  6. CLONIDINE. [Concomitant]
     Active Substance: CLONIDINE
  7. POT CL MICRO [Concomitant]
  8. HYDRALAZINE [Concomitant]
     Active Substance: HYDRALAZINE HYDROCHLORIDE
  9. ORENCIA [Suspect]
     Active Substance: ABATACEPT
     Indication: PSORIATIC ARTHROPATHY
     Route: 058
     Dates: start: 20200213
  10. ATORVASTATIN [Concomitant]
     Active Substance: ATORVASTATIN
  11. LEFLUNOMIDE. [Concomitant]
     Active Substance: LEFLUNOMIDE

REACTIONS (1)
  - Colitis [None]

NARRATIVE: CASE EVENT DATE: 20200614
